FAERS Safety Report 15127249 (Version 1)
Quarter: 2018Q3

REPORT INFORMATION
  Report Type: Spontaneous
  Country: US (occurrence: US)
  Receive Date: 20180614
  Receipt Date: 20180614
  Transmission Date: 20181010
  Serious: No
  Sender: FDA-Public Use
  Company Number: None

PATIENT

DRUGS (1)
  1. ERYTHROMYCIN OPHTHALMIC OINTMENT [Suspect]
     Active Substance: ERYTHROMYCIN
     Route: 047

REACTIONS (2)
  - Product label confusion [None]
  - Product use complaint [None]
